FAERS Safety Report 12600286 (Version 1)
Quarter: 2016Q3

REPORT INFORMATION
  Report Type: Spontaneous
  Country: US (occurrence: US)
  Receive Date: 20160727
  Receipt Date: 20160727
  Transmission Date: 20161109
  Serious: No
  Sender: FDA-Public Use
  Company Number: US-BRACCO-013446

PATIENT
  Sex: Female

DRUGS (1)
  1. E-Z-HD [Suspect]
     Active Substance: BARIUM SULFATE
     Indication: BARIUM SWALLOW
     Dosage: 340G
     Route: 048
     Dates: start: 20160418, end: 20160418

REACTIONS (2)
  - No adverse event [Unknown]
  - Product physical issue [Unknown]

NARRATIVE: CASE EVENT DATE: 20160418
